FAERS Safety Report 21264705 (Version 1)
Quarter: 2022Q3

REPORT INFORMATION
  Report Type: Report from Study
  Country: CA (occurrence: CA)
  Receive Date: 20220829
  Receipt Date: 20220829
  Transmission Date: 20221027
  Serious: Yes (Other)
  Sender: FDA-Public Use
  Company Number: None

PATIENT
  Age: 30 Year
  Sex: Female

DRUGS (2)
  1. MONTELUKAST [Suspect]
     Active Substance: MONTELUKAST SODIUM
     Indication: Chronic spontaneous urticaria
     Dosage: 1 EVERY 1 DAYS
     Route: 048
  2. BILASTINE [Concomitant]
     Active Substance: BILASTINE
     Indication: Chronic spontaneous urticaria
     Dosage: 1 EVERY 1 DAYS
     Route: 048

REACTIONS (4)
  - Angioedema [Unknown]
  - Product use in unapproved indication [Unknown]
  - Skin burning sensation [Unknown]
  - Urticaria [Unknown]
